FAERS Safety Report 7305124-7 (Version None)
Quarter: 2011Q1

REPORT INFORMATION
  Report Type: 
  Country: None (occurrence: None)
  Receive Date: 20110222
  Receipt Date: 20110214
  Transmission Date: 20110831
  Serious: Yes (Other)
  Sender: FDA-Public Use
  Company Number: DE-JNJFOC-20101206823

PATIENT
  Age: 30 Year
  Sex: Female

DRUGS (4)
  1. VALPROAT [Concomitant]
     Route: 065
  2. THYROXIN [Concomitant]
     Route: 065
  3. RISPERDAL CONSTA [Suspect]
     Indication: ILL-DEFINED DISORDER
     Route: 030
  4. PROPRANOLOL [Concomitant]
     Route: 065

REACTIONS (1)
  - PSYCHOTIC DISORDER [None]
